FAERS Safety Report 17731212 (Version 3)
Quarter: 2020Q2

REPORT INFORMATION
  Report Type: Spontaneous
  Country: US (occurrence: US)
  Receive Date: 20200430
  Receipt Date: 20200625
  Transmission Date: 20200714
  Serious: Yes (Hospitalization, Other)
  Sender: FDA-Public Use
  Company Number: US-MALLINCKRODT-T202001934

PATIENT
  Sex: Female
  Weight: 71 kg

DRUGS (2)
  1. H.P. ACTHAR [Suspect]
     Active Substance: CORTICOTROPIN
     Indication: SYSTEMIC LUPUS ERYTHEMATOSUS
     Dosage: 80 UNITS (1ML), DAILY FOR WEEK
     Route: 058
     Dates: start: 202003
  2. H.P. ACTHAR [Suspect]
     Active Substance: CORTICOTROPIN
     Indication: LYME DISEASE

REACTIONS (5)
  - Cardiac disorder [Unknown]
  - Systemic lupus erythematosus [Unknown]
  - Pericarditis [Unknown]
  - Dermatitis infected [Not Recovered/Not Resolved]
  - Product dose omission [Recovered/Resolved]

NARRATIVE: CASE EVENT DATE: 2020
